FAERS Safety Report 25264892 (Version 1)
Quarter: 2025Q2

REPORT INFORMATION
  Report Type: Spontaneous
  Country: US (occurrence: None)
  Receive Date: 20250502
  Receipt Date: 20250502
  Transmission Date: 20250717
  Serious: Yes (Hospitalization)
  Sender: FDA-CTU
  Company Number: None

PATIENT
  Age: 43 Year
  Sex: Male

DRUGS (10)
  1. MYCOPHENOLIC ACID [Suspect]
     Active Substance: MYCOPHENOLIC ACID
     Indication: Renal transplant
     Dosage: FREQUENCY : TWICE A DAY;?
     Route: 048
     Dates: start: 20220107
  2. ASPIRIN 325MG TABLETS [Concomitant]
  3. CILOSTAZOL 100MG TABLETS [Concomitant]
  4. NOVOLOG FLEXPEN INJ 3ML [Concomitant]
  5. OZEMPIC 0.25 OR 0.5MG DOS(2MG/3ML) [Concomitant]
  6. PREDNISONE [Concomitant]
     Active Substance: PREDNISONE
  7. SERTRALINE [Concomitant]
     Active Substance: SERTRALINE HYDROCHLORIDE
  8. SILDENAFIL 100MG TABLETS [Concomitant]
  9. TACROLIMUS [Concomitant]
     Active Substance: TACROLIMUS
  10. LANTUS SOLOSTAR PEN INJ 3ML [Concomitant]

REACTIONS (2)
  - Kidney transplant rejection [None]
  - Insurance issue [None]

NARRATIVE: CASE EVENT DATE: 20250401
